FAERS Safety Report 7543686-5 (Version None)
Quarter: 2011Q2

REPORT INFORMATION
  Report Type: 
  Country: None (occurrence: None)
  Receive Date: 20110613
  Receipt Date: 20030404
  Transmission Date: 20111010
  Serious: Yes (Hospitalization)
  Sender: FDA-Public Use
  Company Number: PHFR2003GB01065

PATIENT
  Sex: Male

DRUGS (5)
  1. CLOZAPINE [Suspect]
     Dosage: 25 MG/DAY
     Route: 048
  2. HALOPERIDOL [Suspect]
     Dosage: 5 MG, BID
     Route: 048
     Dates: start: 20030214, end: 20030217
  3. CLOZAPINE [Suspect]
     Dosage: 200 MG, BID
     Route: 048
     Dates: start: 20020925, end: 20030130
  4. CLOZAPINE [Suspect]
     Dosage: 300 MG, BID
     Route: 048
     Dates: start: 20030130, end: 20030213
  5. HALOPERIDOL [Suspect]
     Dosage: 10 MG, BID
     Route: 048

REACTIONS (21)
  - BLOOD LACTATE DEHYDROGENASE INCREASED [None]
  - BLOOD CREATINE PHOSPHOKINASE INCREASED [None]
  - INCONTINENCE [None]
  - PLATELET COUNT DECREASED [None]
  - BODY TEMPERATURE INCREASED [None]
  - WHITE BLOOD CELL COUNT INCREASED [None]
  - LEUKOPENIA [None]
  - FEEDING DISORDER [None]
  - NEUTROPHIL COUNT INCREASED [None]
  - NEUROLEPTIC MALIGNANT SYNDROME [None]
  - MALAISE [None]
  - TACHYCARDIA [None]
  - LACK OF SPONTANEOUS SPEECH [None]
  - IMMOBILE [None]
  - BLOOD CREATININE DECREASED [None]
  - MUSCLE RIGIDITY [None]
  - DYSTONIA [None]
  - APHASIA [None]
  - C-REACTIVE PROTEIN INCREASED [None]
  - BLOOD CREATINE PHOSPHOKINASE MB INCREASED [None]
  - COGWHEEL RIGIDITY [None]
